FAERS Safety Report 4746652-8 (Version None)
Quarter: 2005Q3

REPORT INFORMATION
  Report Type: 
  Country: None (occurrence: None)
  Receive Date: 20050815
  Receipt Date: 20050729
  Transmission Date: 20060218
  Serious: Yes (Other)
  Sender: FDA-Public Use
  Company Number: S05-UKI-02831-01

PATIENT
  Sex: Male

DRUGS (1)
  1. EBIXA (MEMANTINE) [Suspect]
     Dosage: 10 MG QD PO
     Route: 048

REACTIONS (1)
  - NO ADVERSE DRUG EFFECT [None]
